FAERS Safety Report 12343095 (Version 1)
Quarter: 2016Q2

REPORT INFORMATION
  Report Type: Spontaneous
  Country: BR (occurrence: BR)
  Receive Date: 20160506
  Receipt Date: 20160506
  Transmission Date: 20160815
  Serious: Yes (Other)
  Sender: FDA-Public Use
  Company Number: BR-SA-2016SA088956

PATIENT
  Sex: Female

DRUGS (4)
  1. ALLEGRA-D [Suspect]
     Active Substance: FEXOFENADINE\PSEUDOEPHEDRINE
     Dosage: 60 MG /120 MG DOUBLE LAYERED COATED TABLET
     Route: 048
  2. PREDNISONE. [Concomitant]
     Active Substance: PREDNISONE
     Route: 065
  3. NASONEX [Concomitant]
     Active Substance: MOMETASONE FUROATE
     Route: 065
  4. ZINNAT [Concomitant]
     Active Substance: CEFUROXIME AXETIL
     Route: 065

REACTIONS (3)
  - Drug ineffective [Unknown]
  - Infarction [Unknown]
  - Wrong technique in product usage process [Unknown]
